APPROVED DRUG PRODUCT: FLUOROURACIL
Active Ingredient: FLUOROURACIL
Strength: 500MG/10ML (50MG/ML)
Dosage Form/Route: INJECTABLE;INJECTION
Application: A209219 | Product #001
Applicant: NOVAST LABORATORIES LTD
Approved: Dec 12, 2019 | RLD: No | RS: No | Type: DISCN